FAERS Safety Report 21631064 (Version 1)
Quarter: 2022Q4

REPORT INFORMATION
  Report Type: Spontaneous
  Country: FR (occurrence: FR)
  Receive Date: 20221123
  Receipt Date: 20221123
  Transmission Date: 20230113
  Serious: Yes (Other)
  Sender: FDA-Public Use
  Company Number: FR-KYOWAKIRIN-2022AKK017150

PATIENT
  Age: 12 Year
  Sex: Female

DRUGS (17)
  1. IRINOTECAN [Suspect]
     Active Substance: IRINOTECAN
     Indication: Optic glioma
     Dosage: 172 MILLIGRAM(172 MG, MONTHLY)
     Route: 042
     Dates: start: 201304, end: 201312
  2. PROCARBAZINE [Suspect]
     Active Substance: PROCARBAZINE
     Indication: Optic glioma
     Dosage: 296 MILLIGRAM (296 MG, MONTHLY)
     Route: 048
     Dates: start: 201806, end: 201903
  3. CARBOPLATIN [Suspect]
     Active Substance: CARBOPLATIN
     Indication: Optic glioma
     Dosage: 23 MILLIGRAM, EVERY WEEK(123 MG, WEEKLY)
     Route: 042
     Dates: start: 200906, end: 201004
  4. LOMUSTINE [Suspect]
     Active Substance: LOMUSTINE
     Indication: Optic glioma
     Dosage: 168 MILLIGRAM(168 MG, MONTHLY)
     Route: 048
     Dates: start: 201806, end: 201903
  5. AVASTIN [Suspect]
     Active Substance: BEVACIZUMAB
     Indication: Optic glioma
     Dosage: 300 MILLIGRAM(300 MG, MONTHLY)
     Route: 042
     Dates: start: 201304, end: 201312
  6. COBIMETINIB [Suspect]
     Active Substance: COBIMETINIB
     Indication: Optic glioma
     Dosage: 5.5 MILLILITER, ONCE A DAY(5.5 ML DAILY)
     Route: 048
     Dates: start: 201706, end: 201708
  7. NILOTINIB [Suspect]
     Active Substance: NILOTINIB
     Indication: Optic glioma
     Dosage: 150 MILLIGRAM, ONCE A DAY(150 MG DAILY)
     Route: 048
     Dates: start: 201312, end: 201411
  8. THIOGUANINE [Suspect]
     Active Substance: THIOGUANINE
     Indication: Optic glioma
     Dosage: 480 MILLIGRAM(480 MG, MONTHLY)
     Route: 048
     Dates: start: 201806, end: 201903
  9. CYCLOPHOSPHAMIDE [Suspect]
     Active Substance: CYCLOPHOSPHAMIDE
     Indication: Optic glioma
     Dosage: 1500 MILLIGRAM/SQ. METER(1500 MG/M2, MONTHLY)
     Route: 042
     Dates: start: 201004, end: 201012
  10. ONCOVIN [Suspect]
     Active Substance: VINCRISTINE SULFATE
     Indication: Optic glioma
     Dosage: 4 MILLIGRAM(4 MG, MONTHLY)
     Route: 042
     Dates: start: 201806, end: 201903
  11. ONCOVIN [Suspect]
     Active Substance: VINCRISTINE SULFATE
     Dosage: 0.3 MILLIGRAM(0.3 MG)
     Route: 042
     Dates: start: 200906, end: 201012
  12. TRIPTORELIN PAMOATE [Suspect]
     Active Substance: TRIPTORELIN PAMOATE
     Indication: Precocious puberty
     Dosage: 3 MILLIGRAM(3 MG, MONTHLY)
     Route: 058
     Dates: start: 201705, end: 201909
  13. VINBLASTINE SULFATE [Suspect]
     Active Substance: VINBLASTINE SULFATE
     Indication: Optic glioma
     Dosage: 6 MILLIGRAM/SQ. METER, EVERY WEEK(6 MG/M2, WEEKLY)
     Route: 042
     Dates: start: 201204, end: 201304
  14. NAVELBINE [Suspect]
     Active Substance: VINORELBINE TARTRATE
     Indication: Optic glioma
     Dosage: 200 MILLIGRAM(200 MG, MONTHLY)
     Route: 048
     Dates: start: 201609, end: 201703
  15. CISPLATIN [Suspect]
     Active Substance: CISPLATIN
     Indication: Optic glioma
     Dosage: 30 MILLIGRAM/SQ. METER(30 MG/M2, MONTHLY)
     Route: 042
     Dates: start: 201004, end: 201012
  16. KEPPRA [Suspect]
     Active Substance: LEVETIRACETAM
     Indication: Seizure prophylaxis
     Dosage: 1 GRAM, ONCE A DAY(1 G DAILY)
     Route: 048
     Dates: start: 201903, end: 202110
  17. VINBLASTINE SULFATE [Suspect]
     Active Substance: VINBLASTINE SULFATE
     Indication: Optic glioma
     Dosage: 2.2 MILLIGRAM, EVERY WEEK(2.2 MG, WEEKLY)
     Route: 042
     Dates: start: 201312, end: 201411

REACTIONS (3)
  - Type 2 diabetes mellitus [Not Recovered/Not Resolved]
  - Product use in unapproved indication [Unknown]
  - Off label use [Unknown]

NARRATIVE: CASE EVENT DATE: 20210420
